FAERS Safety Report 20137589 (Version 2)
Quarter: 2021Q4

REPORT INFORMATION
  Report Type: Spontaneous
  Country: US (occurrence: US)
  Receive Date: 20211201
  Receipt Date: 20211209
  Transmission Date: 20220303
  Serious: Yes (Other)
  Sender: FDA-Public Use
  Company Number: US-drreddys-LIT/USA/21/0144326

PATIENT
  Age: 28 Year
  Sex: Female

DRUGS (2)
  1. TRIENTINE HYDROCHLORIDE [Suspect]
     Active Substance: TRIENTINE HYDROCHLORIDE
     Indication: Hepato-lenticular degeneration
  2. ZINC ACETATE [Concomitant]
     Active Substance: ZINC ACETATE
     Indication: Hepato-lenticular degeneration

REACTIONS (1)
  - Cognitive disorder [Recovered/Resolved]
